FAERS Safety Report 14638246 (Version 1)
Quarter: 2018Q1

REPORT INFORMATION
  Report Type: Spontaneous
  Country: US (occurrence: US)
  Receive Date: 20180314
  Receipt Date: 20180314
  Transmission Date: 20180509
  Serious: Yes (Disabling)
  Sender: FDA-Public Use
  Company Number: None

PATIENT
  Age: 63 Year
  Sex: Male
  Weight: 63 kg

DRUGS (2)
  1. PROLIA [Suspect]
     Active Substance: DENOSUMAB
     Indication: OSTEOPOROSIS
     Dosage: INTRAMUSCULAR, 1 TIME PER 6 MONTH?
     Route: 030
     Dates: start: 20170803
  2. MULTI-VIT. [Concomitant]

REACTIONS (2)
  - Neuropathy peripheral [None]
  - Palpitations [None]

NARRATIVE: CASE EVENT DATE: 20170822
